FAERS Safety Report 17022179 (Version 1)
Quarter: 2019Q4

REPORT INFORMATION
  Report Type: Spontaneous
  Country: US (occurrence: US)
  Receive Date: 20191112
  Receipt Date: 20191112
  Transmission Date: 20200122
  Serious: No
  Sender: FDA-Public Use
  Company Number: US-TEVA-2019-US-1133946

PATIENT
  Age: 55 Year
  Sex: Female

DRUGS (4)
  1. COPAXONE [Suspect]
     Active Substance: GLATIRAMER ACETATE
     Indication: MULTIPLE SCLEROSIS
     Route: 058
     Dates: start: 20170616, end: 20191104
  2. PAROXETINE. [Concomitant]
     Active Substance: PAROXETINE
  3. LUNESTA [Concomitant]
     Active Substance: ESZOPICLONE
  4. ESZOPICLONE. [Concomitant]
     Active Substance: ESZOPICLONE

REACTIONS (1)
  - Drug ineffective [Unknown]

NARRATIVE: CASE EVENT DATE: 20191104
